FAERS Safety Report 6274383 (Version 27)
Quarter: 2014Q2

REPORT INFORMATION
  Report Type: Spontaneous
  Country: US (occurrence: US)
  Receive Date: 20070329
  Receipt Date: 20140527
  Transmission Date: 20141212
  Serious: Yes (Hospitalization, Disabling, Other)
  Sender: FDA-Public Use
  Company Number: PHEH2007US03407

PATIENT
  Age: 49 Year
  Sex: Female
  Weight: 74.83 kg

DRUGS (41)
  1. AREDIA [Suspect]
     Route: 042
  2. ZOMETA [Suspect]
     Route: 042
  3. RENAGEL [Concomitant]
     Dosage: 800 MG
  4. KAYEXALATE [Concomitant]
  5. THALIDOMIDE [Concomitant]
     Dosage: 50 MG, QID
  6. BACTRIM [Concomitant]
     Dosage: 80 MG, BIW
  7. OXYCONTIN [Concomitant]
     Dosage: 10 MG
  8. NORVASC [Concomitant]
     Dosage: 10 MG, BID
  9. DIOVAN [Concomitant]
     Dosage: 160 MG, BID
  10. TOPRAL XL [Concomitant]
     Dosage: 50 MG
  11. CALCIUM CARBONATE [Concomitant]
     Dosage: 400 MG, QID
  12. OMEPRAZOLE [Concomitant]
     Dosage: 20 MG, QD
  13. LORTAB [Concomitant]
     Dosage: 7.5 MG, PRN
  14. STEROIDS NOS [Concomitant]
     Route: 041
  15. NEPHRO-VITE [Concomitant]
  16. CHEMOTHERAPEUTICS NOS [Concomitant]
  17. CELEXA [Concomitant]
  18. LIPITOR                                 /NET/ [Concomitant]
  19. CELLCEPT [Concomitant]
  20. METHADONE [Concomitant]
  21. PREDNISONE [Concomitant]
  22. MAGNESIUM [Concomitant]
  23. LYRICA [Concomitant]
  24. MINOXIDIL [Concomitant]
  25. MIRALAX [Concomitant]
  26. ROCALTROL [Concomitant]
  27. PROGRAF [Concomitant]
     Dosage: 1 MG, QID
  28. MYCELEX [Concomitant]
  29. METOPROLOL [Concomitant]
     Dosage: 100 MG, BID
  30. METOCLOPRAMIDE [Concomitant]
     Dosage: 10 MG, TID
  31. SENSIPAR [Concomitant]
     Dosage: 30 MG, QOD
  32. SODIUM POLYSTYRENE SULFONATE [Concomitant]
     Dosage: 60 MG, 4 TABS, QD
  33. PREVIDENT [Concomitant]
  34. CHLORHEXIDINE [Concomitant]
  35. EPINEPHRINE [Concomitant]
  36. PEN-VEE-K [Concomitant]
  37. AUGMENTIN [Concomitant]
  38. AMOXYCILLIN [Concomitant]
  39. PRILOCAINE [Concomitant]
  40. LIDOCAINE [Concomitant]
  41. MAG-OX [Concomitant]

REACTIONS (133)
  - Escherichia bacteraemia [Unknown]
  - Urinary tract infection [Unknown]
  - Pyelonephritis [Unknown]
  - Acute leukaemia [Unknown]
  - Osteonecrosis of jaw [Unknown]
  - General physical health deterioration [Unknown]
  - Pain [Unknown]
  - Anxiety [Unknown]
  - Decreased interest [Unknown]
  - Bone disorder [Unknown]
  - Oedema [Unknown]
  - Gingival recession [Unknown]
  - Dental caries [Unknown]
  - Oral cavity fistula [Unknown]
  - Haematemesis [Unknown]
  - Large intestine polyp [Unknown]
  - Diverticulum [Unknown]
  - Haemorrhoids [Unknown]
  - Abdominal pain upper [Unknown]
  - Erosive oesophagitis [Unknown]
  - Barrett^s oesophagus [Unknown]
  - Hiatus hernia [Unknown]
  - Anaemia [Unknown]
  - Gastritis [Unknown]
  - Azotaemia [Unknown]
  - Cholecystitis [Unknown]
  - Gallbladder cholesterolosis [Unknown]
  - Arteriovenous graft aneurysm [Unknown]
  - Tooth abscess [Unknown]
  - Blood calcium decreased [Unknown]
  - Arteriovenous fistula thrombosis [Unknown]
  - Arteriovenous fistula site complication [Unknown]
  - Renal failure acute [Unknown]
  - Foot deformity [Unknown]
  - Foot deformity [Recovered/Resolved]
  - Post herpetic neuralgia [Unknown]
  - Chronic gastritis [Unknown]
  - Dyspepsia [Unknown]
  - Impaired gastric emptying [Unknown]
  - Blood glucose decreased [Unknown]
  - Second primary malignancy [Unknown]
  - Blood potassium increased [Unknown]
  - Jaw fracture [Unknown]
  - Cellulitis [Unknown]
  - Depression [Unknown]
  - Ulcer [Unknown]
  - Skin abrasion [Unknown]
  - Melanocytic naevus [Unknown]
  - Hypercholesterolaemia [Unknown]
  - Gastrooesophageal reflux disease [Unknown]
  - Magnesium deficiency [Unknown]
  - Vitamin D deficiency [Recovering/Resolving]
  - Influenza like illness [Unknown]
  - Change of bowel habit [Unknown]
  - Headache [Unknown]
  - Cough [Unknown]
  - Back pain [Unknown]
  - Urinary incontinence [Unknown]
  - Skin lesion [Unknown]
  - Dermatitis [Unknown]
  - Device related infection [Unknown]
  - Arthritis [Unknown]
  - Hyperparathyroidism [Unknown]
  - Hypercalcaemia [Unknown]
  - Discomfort [Unknown]
  - Paraesthesia [Unknown]
  - Osteitis [Unknown]
  - Infection [Unknown]
  - Pain in jaw [Unknown]
  - Dysgeusia [Unknown]
  - Erythema [Unknown]
  - Loose tooth [Unknown]
  - Lymphadenopathy [Unknown]
  - Hypoaesthesia oral [Unknown]
  - Dizziness [Unknown]
  - Intra-abdominal pressure increased [Unknown]
  - Facial asymmetry [Unknown]
  - Face oedema [Unknown]
  - Lymph node pain [Unknown]
  - Oropharyngeal plaque [Unknown]
  - Purulent discharge [Unknown]
  - Tongue disorder [Unknown]
  - Hepatic failure [Unknown]
  - Periodontitis [Unknown]
  - Osteopenia [Unknown]
  - Essential hypertension [Unknown]
  - Oesophagitis ulcerative [Unknown]
  - Glucose tolerance impaired [Unknown]
  - Rash [Unknown]
  - Pruritus [Unknown]
  - Macule [Unknown]
  - Decreased appetite [Unknown]
  - Constipation [Unknown]
  - Oesophageal ulcer [Unknown]
  - Renal failure chronic [Unknown]
  - Hyperlipidaemia [Unknown]
  - Hyperhidrosis [Unknown]
  - Bacteraemia [Unknown]
  - Hepatic steatosis [Unknown]
  - Sepsis [Unknown]
  - Dysplasia [Unknown]
  - Endocarditis bacterial [Unknown]
  - Dyspnoea [Unknown]
  - Oropharyngeal pain [Unknown]
  - Acne [Unknown]
  - Swelling [Unknown]
  - Trismus [Unknown]
  - Protrusion tongue [Unknown]
  - Swelling face [Unknown]
  - Oral disorder [Unknown]
  - Oral mucosal erythema [Unknown]
  - Dyslipidaemia [Unknown]
  - Colitis ulcerative [Unknown]
  - Hypokalaemia [Unknown]
  - Dysuria [Unknown]
  - Pollakiuria [Unknown]
  - Micturition urgency [Unknown]
  - Renal atrophy [Unknown]
  - Blood glucose increased [Unknown]
  - Diarrhoea [Unknown]
  - Asthenia [Unknown]
  - Abdominal pain [Unknown]
  - Pyrexia [Unknown]
  - Malaise [Unknown]
  - Chills [Unknown]
  - Vomiting [Unknown]
  - Fatigue [Unknown]
  - Deep vein thrombosis [Unknown]
  - Sinus tachycardia [Unknown]
  - Clubbing [Unknown]
  - Nausea [Unknown]
  - Abdominal tenderness [Unknown]
  - Hypotension [Unknown]
